FAERS Safety Report 9832611 (Version 1)
Quarter: 2014Q1

REPORT INFORMATION
  Report Type: Spontaneous
  Country: IT (occurrence: IT)
  Receive Date: 20140121
  Receipt Date: 20140121
  Transmission Date: 20141002
  Serious: Yes (Hospitalization)
  Sender: FDA-Public Use
  Company Number: PHHY2014IT005844

PATIENT
  Age: 80 Year
  Sex: Female

DRUGS (3)
  1. VOLTAREN [Suspect]
     Indication: NEPHROLITHIASIS
     Dosage: 150 MG, DAILY
     Route: 030
     Dates: start: 20131223, end: 20131225
  2. OMEPRAZOLE [Concomitant]
     Dosage: UNK UKN, UNK
     Route: 048
  3. CARDIOASPIRIN [Concomitant]
     Dosage: 100 MG, UNK
     Route: 048

REACTIONS (3)
  - Hypertensive encephalopathy [Unknown]
  - Confusional state [Unknown]
  - Presyncope [Unknown]
